FAERS Safety Report 9643549 (Version 2)
Quarter: 2013Q4

REPORT INFORMATION
  Report Type: Spontaneous
  Country: CA (occurrence: CA)
  Receive Date: 20131024
  Receipt Date: 20131127
  Transmission Date: 20140711
  Serious: Yes (Other)
  Sender: FDA-Public Use
  Company Number: CA-BAYER-2013-128422

PATIENT
  Sex: Female

DRUGS (5)
  1. BETASERON [Suspect]
     Indication: RELAPSING-REMITTING MULTIPLE SCLEROSIS
     Dosage: UNK
     Dates: start: 201012, end: 201108
  2. GABAPENTIN [Concomitant]
     Dosage: 300 MG
  3. RABEPRAZOLE [Concomitant]
  4. BACLOFEN [Concomitant]
     Dosage: 10 MG
  5. AMANTADINE [Concomitant]

REACTIONS (2)
  - Multiple sclerosis [None]
  - Influenza like illness [None]
